APPROVED DRUG PRODUCT: MIRTAZAPINE
Active Ingredient: MIRTAZAPINE
Strength: 15MG
Dosage Form/Route: TABLET;ORAL
Application: A076122 | Product #001 | TE Code: AB
Applicant: MYLAN PHARMACEUTICALS INC
Approved: Jun 19, 2003 | RLD: No | RS: No | Type: RX